FAERS Safety Report 18190729 (Version 1)
Quarter: 2020Q3

REPORT INFORMATION
  Report Type: Report from Study
  Country: US (occurrence: US)
  Receive Date: 20200824
  Receipt Date: 20200824
  Transmission Date: 20201103
  Serious: Yes (Death, Hospitalization)
  Sender: FDA-Public Use
  Company Number: US-ASTRAZENECA-2018SE34865

PATIENT
  Age: 30068 Day
  Sex: Male

DRUGS (3)
  1. ALBUTEROL. [Concomitant]
     Active Substance: ALBUTEROL
     Indication: EMPHYSEMA
     Route: 055
  2. MEDROL [Concomitant]
     Active Substance: METHYLPREDNISOLONE
     Route: 048
     Dates: start: 20180412
  3. IMFINZI [Suspect]
     Active Substance: DURVALUMAB
     Indication: LUNG NEOPLASM MALIGNANT
     Dosage: EVERY TWO WEEKS
     Route: 042
     Dates: start: 20180315

REACTIONS (29)
  - Death [Fatal]
  - Headache [Recovered/Resolved]
  - Peripheral swelling [Unknown]
  - Muscular weakness [Unknown]
  - Renal disorder [Unknown]
  - Urine output increased [Unknown]
  - Productive cough [Unknown]
  - Back pain [Not Recovered/Not Resolved]
  - Cardiac hypertrophy [Unknown]
  - Weight decreased [Unknown]
  - Tachycardia [Unknown]
  - Pericardial effusion [Unknown]
  - Kyphosis [Unknown]
  - Dyspnoea [Not Recovered/Not Resolved]
  - Pneumonia aspiration [Unknown]
  - Diplopia [Not Recovered/Not Resolved]
  - Asthenia [Unknown]
  - Body temperature decreased [Unknown]
  - Dizziness [Recovered/Resolved]
  - Pleural effusion [Unknown]
  - Dehydration [Unknown]
  - Nausea [Recovered/Resolved]
  - Nipple pain [Unknown]
  - Urinary incontinence [Unknown]
  - Visual impairment [Unknown]
  - Hypersomnia [Unknown]
  - Thrombosis [Unknown]
  - White blood cell count increased [Unknown]
  - Dysphagia [Unknown]

NARRATIVE: CASE EVENT DATE: 20180315
